FAERS Safety Report 11792634 (Version 2)
Quarter: 2016Q2

REPORT INFORMATION
  Report Type: Report from Study
  Country: JP (occurrence: JP)
  Receive Date: 20151202
  Receipt Date: 20160421
  Transmission Date: 20160815
  Serious: Yes (Other)
  Sender: FDA-Public Use
  Company Number: JP-AMGEN-JPNCT2015127947

PATIENT
  Age: 58 Year
  Sex: Female
  Weight: 40 kg

DRUGS (10)
  1. NEXIUM [Concomitant]
     Active Substance: ESOMEPRAZOLE MAGNESIUM
     Dosage: 10 MG, QD
     Route: 048
     Dates: start: 20141010, end: 20141018
  2. LYRICA [Concomitant]
     Active Substance: PREGABALIN
     Dosage: 100MG/DAY
     Route: 048
     Dates: start: 20141011, end: 20141018
  3. RINDERON V [Concomitant]
     Active Substance: BETAMETHASONE VALERATE
     Dosage: UNK
     Route: 048
     Dates: start: 20141009, end: 20141017
  4. NOVAMIN [Concomitant]
     Active Substance: PROCHLORPERAZINE MALEATE
     Dosage: 15MG/DAY
     Route: 048
     Dates: start: 20141014, end: 20141018
  5. DENOSUMAB [Suspect]
     Active Substance: DENOSUMAB
     Indication: METASTASES TO BONE
     Dosage: 120 MG, UNK
     Route: 058
     Dates: start: 20140414
  6. MAGMITT [Concomitant]
     Active Substance: MAGNESIUM OXIDE
     Dosage: 990MG/DAY
     Route: 048
     Dates: start: 20120626, end: 20141018
  7. OXYCONTIN [Concomitant]
     Active Substance: OXYCODONE HYDROCHLORIDE
     Dosage: 10MG/DAY
     Route: 048
     Dates: start: 20120626, end: 20141016
  8. VERAPAMIL HCL [Concomitant]
     Active Substance: VERAPAMIL HYDROCHLORIDE
     Dosage: 10MG/DAY
     Route: 050
     Dates: start: 20141017, end: 20141019
  9. VOLTAREN [Concomitant]
     Active Substance: DICLOFENAC SODIUM
     Dosage: 75MG/DAY
     Route: 048
     Dates: end: 20141008
  10. ZOMETA [Suspect]
     Active Substance: ZOLEDRONIC ACID
     Indication: PRODUCT USED FOR UNKNOWN INDICATION
     Dosage: 4MG/5ML/DAY
     Route: 042
     Dates: start: 20120710, end: 20140318

REACTIONS (1)
  - Osteonecrosis of jaw [Not Recovered/Not Resolved]

NARRATIVE: CASE EVENT DATE: 20140512
